FAERS Safety Report 15140135 (Version 5)
Quarter: 2020Q3

REPORT INFORMATION
  Report Type: Report from Study
  Country: DE (occurrence: DE)
  Receive Date: 20180713
  Receipt Date: 20190809
  Transmission Date: 20201104
  Serious: Yes (Death)
  Sender: FDA-Public Use
  Company Number: DE-ROCHE-2152393

PATIENT
  Age: 69 Year
  Sex: Male
  Weight: 78 kg

DRUGS (28)
  1. ATEZOLIZUMAB. [Suspect]
     Active Substance: ATEZOLIZUMAB
     Indication: B-CELL LYMPHOMA
     Dosage: DATE OF MOST RECENT DOSE OF ATEZOLIZUMAB PRIOR TO SAE ONSET 18 OCT 2017 (1200 MG)
     Route: 042
     Dates: start: 20170906
  2. DEXPANTHENOL. [Concomitant]
     Active Substance: DEXPANTHENOL
     Indication: STOMATITIS
     Route: 065
     Dates: start: 20171103
  3. OPTIVE [Concomitant]
     Active Substance: CARBOXYMETHYLCELLULOSE SODIUM\GLYCERIN
     Indication: SCLERITIS
     Route: 065
     Dates: start: 20171107
  4. CETIRIZIN [Concomitant]
     Active Substance: CETIRIZINE HYDROCHLORIDE
     Indication: DERMATITIS
     Route: 065
     Dates: start: 20171107
  5. PERFALGAN [Concomitant]
     Active Substance: ACETAMINOPHEN
     Indication: PYREXIA
     Route: 042
     Dates: start: 20180118
  6. PROGRAF [Concomitant]
     Active Substance: TACROLIMUS
     Indication: DRY EYE
     Dosage: ORAL 1MG DOSE WILL BE GIVEN AFTER LAB VALUES
     Route: 065
     Dates: start: 20180126, end: 20180606
  7. PROGRAF [Concomitant]
     Active Substance: TACROLIMUS
     Indication: DERMATITIS
  8. LASIX [Concomitant]
     Active Substance: FUROSEMIDE
     Indication: OEDEMA PERIPHERAL
     Route: 042
     Dates: start: 20180128
  9. DEXAPOS COMOD [Concomitant]
     Indication: DRY EYE
     Route: 065
     Dates: start: 20180119
  10. PROGRAF [Concomitant]
     Active Substance: TACROLIMUS
     Indication: STOMATITIS
  11. DAIVONEX [Concomitant]
     Active Substance: CALCIPOTRIENE
     Indication: DERMATITIS
     Route: 065
     Dates: start: 20180127
  12. SQUAMASOL [Concomitant]
     Indication: DERMATITIS
     Route: 065
     Dates: start: 20180214
  13. POLATUZUMAB VEDOTIN. [Suspect]
     Active Substance: POLATUZUMAB VEDOTIN
     Indication: B-CELL LYMPHOMA
     Dosage: DATE OF MOST RECENT DOSE OF POLATUZUMAB VEDOTIN PRIOR TO SAE ONSET 08 NOV 2017 (169.20 MG)
     Route: 042
     Dates: start: 20170816
  14. PENTACARINAT [Concomitant]
     Active Substance: PENTAMIDINE ISETHIONATE
     Route: 065
     Dates: start: 20170920
  15. KALINOR [CITRIC ACID;POTASSIUM BICARBONATE;POTASSIUM CITRATE] [Concomitant]
     Active Substance: CITRIC ACID MONOHYDRATE\POTASSIUM BICARBONATE\POTASSIUM CITRATE
     Indication: HYPOKALAEMIA
     Route: 065
     Dates: start: 20180117
  16. VITAMIN A [RETINOL] [Concomitant]
     Active Substance: RETINOL
     Indication: DRY EYE
     Route: 065
     Dates: start: 20180214
  17. KINERET [Concomitant]
     Active Substance: ANAKINRA
     Indication: DERMATITIS
     Route: 058
     Dates: start: 20180306
  18. BEROTEC [Concomitant]
     Active Substance: FENOTEROL HYDROBROMIDE
     Route: 065
     Dates: start: 20170920
  19. CICLOPIROX. [Concomitant]
     Active Substance: CICLOPIROX
     Indication: DERMATITIS
     Route: 065
     Dates: start: 20180223
  20. DAIVOBET [Concomitant]
     Active Substance: BETAMETHASONE DIPROPIONATE\CALCIPOTRIENE
     Indication: DERMATITIS
     Route: 065
     Dates: start: 20180127
  21. NACL [Concomitant]
     Active Substance: SODIUM CHLORIDE
     Indication: SINUSITIS
     Route: 065
     Dates: start: 20180227
  22. PANTOZOL [Concomitant]
     Active Substance: PANTOPRAZOLE SODIUM
     Indication: GASTROINTESTINAL DISORDER PROPHYLAXIS
     Route: 065
     Dates: start: 20171018
  23. BETAMETHASONE. [Concomitant]
     Active Substance: BETAMETHASONE
     Indication: DERMATITIS
     Route: 065
     Dates: start: 20171103
  24. KCL [Concomitant]
     Active Substance: POTASSIUM CHLORIDE
     Indication: HYPOKALAEMIA
     Route: 042
     Dates: start: 20180206
  25. OBINUTUZUMAB. [Suspect]
     Active Substance: OBINUTUZUMAB
     Indication: B-CELL LYMPHOMA
     Dosage: DATE OF MOST RECENT DOSE OF OBINUTUZUMAB PRIOR TO SAE ONSET  08 NOV 2017 (1000 MG)
     Route: 042
     Dates: start: 20170816
  26. DEXA [DEXAMETHASONE] [Concomitant]
     Indication: DRY EYE
     Route: 065
     Dates: start: 20180131
  27. FLOXAL [Concomitant]
     Active Substance: OFLOXACIN
     Indication: DRY EYE
     Route: 065
     Dates: start: 20180128
  28. CICLOSPORIN [Concomitant]
     Active Substance: CYCLOSPORINE
     Indication: DRY EYE
     Route: 065
     Dates: end: 20180214

REACTIONS (1)
  - Death [Fatal]

NARRATIVE: CASE EVENT DATE: 20180704
